FAERS Safety Report 7547269-2 (Version None)
Quarter: 2011Q2

REPORT INFORMATION
  Report Type: 
  Country: None (occurrence: None)
  Receive Date: 20110614
  Receipt Date: 20110602
  Transmission Date: 20111010
  Serious: Yes (Other)
  Sender: FDA-Public Use
  Company Number: US-JNJFOC-2007313104

PATIENT
  Sex: Female
  Weight: 65.31 kg

DRUGS (1)
  1. NICOTINE [Suspect]
     Indication: SMOKING CESSATION THERAPY
     Dosage: DAILY DOSE TEXT: UNK
     Route: 055
     Dates: start: 19980101

REACTIONS (3)
  - WEIGHT DECREASED [None]
  - DRUG DEPENDENCE [None]
  - WITHDRAWAL SYNDROME [None]
